FAERS Safety Report 21762393 (Version 5)
Quarter: 2023Q1

REPORT INFORMATION
  Report Type: Spontaneous
  Country: DE (occurrence: DE)
  Receive Date: 20221221
  Receipt Date: 20230321
  Transmission Date: 20230418
  Serious: Yes (Other)
  Sender: FDA-Public Use
  Company Number: DE-SUN PHARMACEUTICAL INDUSTRIES LTD-2022RR-368078

PATIENT
  Age: 64 Year
  Sex: Male

DRUGS (2)
  1. FINGOLIMOD [Suspect]
     Active Substance: FINGOLIMOD
     Indication: Relapsing-remitting multiple sclerosis
     Dosage: UNK
     Route: 065
  2. FINGOLIMOD [Suspect]
     Active Substance: FINGOLIMOD
     Indication: COVID-19 immunisation

REACTIONS (5)
  - Decreased immune responsiveness [Unknown]
  - Vaccination failure [Unknown]
  - Immunodeficiency [Unknown]
  - Relapsing-remitting multiple sclerosis [Unknown]
  - Off label use [Unknown]
